FAERS Safety Report 5868396-1 (Version None)
Quarter: 2008Q3

REPORT INFORMATION
  Report Type: 
  Country: None (occurrence: None)
  Receive Date: 20080902
  Receipt Date: 20080902
  Transmission Date: 20090109
  Serious: Yes (Other)
  Sender: FDA-Public Use
  Company Number: None

PATIENT
  Age: 60 Year
  Sex: Female
  Weight: 54.4316 kg

DRUGS (2)
  1. PROCRIT [Suspect]
     Indication: ANAEMIA
     Dosage: 10,000 UNITS 2 TIMES A WEEK IM, 2 TIMES A WEEK
     Route: 030
     Dates: start: 20070610, end: 20080722
  2. PROCRIT [Suspect]
     Indication: RENAL FAILURE CHRONIC
     Dosage: 10,000 UNITS 2 TIMES A WEEK IM, 2 TIMES A WEEK
     Route: 030
     Dates: start: 20070610, end: 20080722

REACTIONS (4)
  - ASTHENIA [None]
  - DRUG EFFECT DECREASED [None]
  - ILL-DEFINED DISORDER [None]
  - PHARMACEUTICAL PRODUCT COMPLAINT [None]
